FAERS Safety Report 16699295 (Version 1)
Quarter: 2019Q3

REPORT INFORMATION
  Report Type: Spontaneous
  Country: US (occurrence: US)
  Receive Date: 20190813
  Receipt Date: 20190813
  Transmission Date: 20191004
  Serious: No
  Sender: FDA-Public Use
  Company Number: US-HORIZON-VIM-0308-2019

PATIENT
  Sex: Female

DRUGS (1)
  1. VIMOVO [Suspect]
     Active Substance: ESOMEPRAZOLE MAGNESIUM\NAPROXEN
     Indication: ARTHRALGIA

REACTIONS (5)
  - Therapy cessation [Unknown]
  - Feeling abnormal [Unknown]
  - Fatigue [Unknown]
  - Inability to afford medication [Unknown]
  - Insurance issue [Unknown]
